FAERS Safety Report 5750716-X (Version None)
Quarter: 2008Q2

REPORT INFORMATION
  Report Type: 
  Country: None (occurrence: None)
  Receive Date: 20080528
  Receipt Date: 20080515
  Transmission Date: 20081010
  Serious: Yes (Life-Threatening, Hospitalization)
  Sender: FDA-Public Use
  Company Number: CH-BAYER-200815072GPV

PATIENT
  Age: 50 Year
  Sex: Male

DRUGS (5)
  1. ULTRAVIST 370 [Suspect]
     Indication: COMPUTERISED TOMOGRAM
     Dosage: AS USED: 120 ML
     Route: 040
     Dates: start: 20080205, end: 20080205
  2. PLAVIX [Concomitant]
     Route: 048
  3. CANDESARTAN CILEXETIL [Concomitant]
     Route: 048
  4. BISPHOSPHONAT [Concomitant]
     Route: 048
  5. MEFENACID / MEFENAMIC ACID [Concomitant]
     Route: 048

REACTIONS (8)
  - ANAPHYLACTOID SHOCK [None]
  - DYSPNOEA [None]
  - ERYTHEMA [None]
  - GAIT DISTURBANCE [None]
  - RHABDOMYOLYSIS [None]
  - SWELLING FACE [None]
  - TYPE I HYPERSENSITIVITY [None]
  - VENTRICULAR FIBRILLATION [None]
